FAERS Safety Report 9852398 (Version 2)
Quarter: 2014Q4

REPORT INFORMATION
  Report Type: Spontaneous
  Country: US (occurrence: US)
  Receive Date: 20140129
  Receipt Date: 20141112
  Transmission Date: 20150529
  Serious: No
  Sender: FDA-Public Use
  Company Number: US-BRACCO-009736

PATIENT
  Age: 47 Year
  Sex: Male
  Weight: 68 kg

DRUGS (4)
  1. MARCAINE [Concomitant]
     Active Substance: BUPIVACAINE HYDROCHLORIDE
     Route: 014
     Dates: start: 20130709, end: 20130709
  2. ISOVUE-M [Concomitant]
     Active Substance: IOPAMIDOL
     Dosage: MH 0.2 ML MIXED WITH 10 ML OF ISOVUE  AND 5 ML SALINE, 14 ML OF MIXTURE INJECTED INTRAARTICULARLY
     Route: 014
     Dates: start: 20130709, end: 20130709
  3. MULTIHANCE [Suspect]
     Active Substance: GADOBENATE DIMEGLUMINE
     Indication: ARTHROGRAM
     Dosage: MH 0.2 ML MIXED WITH 10 ML OF ISOVUE  AND 5 ML SALINE, 14 ML OF MIXTURE INJECTED INTRAARTICULARLY
     Route: 014
     Dates: start: 20130709, end: 20130709
  4. SALINE [Concomitant]
     Active Substance: SODIUM CHLORIDE
     Dosage: MH 0.2 ML MIXED WITH 10 ML OF ISOVUE  AND 5 ML SALINE, 14 ML OF MIXTURE INJECTED INTRAARTICULARLY
     Route: 014
     Dates: start: 20130709, end: 20130709

REACTIONS (2)
  - Wrong technique in drug usage process [Unknown]
  - Drug ineffective [Unknown]

NARRATIVE: CASE EVENT DATE: 20130709
